FAERS Safety Report 5365770-7 (Version None)
Quarter: 2007Q2

REPORT INFORMATION
  Report Type: 
  Country: None (occurrence: None)
  Receive Date: 20070611
  Receipt Date: 20070323
  Transmission Date: 20071010
  Serious: Yes (Death, Life-Threatening, Other)
  Sender: FDA-Public Use
  Company Number: USA-2007-0026868

PATIENT
  Age: 19 Year
  Sex: Male

DRUGS (2)
  1. OXYCONTIN [Suspect]
     Indication: DRUG ABUSER
     Dosage: 80 MG, SEE TEXT
     Dates: start: 20050923
  2. ALCOHOL (ETHANOL) [Suspect]
     Indication: ALCOHOL USE
     Dosage: ORAL
     Route: 048
     Dates: start: 20050923

REACTIONS (6)
  - CHOKING [None]
  - FEELING HOT [None]
  - FOAMING AT MOUTH [None]
  - MULTIPLE DRUG OVERDOSE [None]
  - SUBSTANCE ABUSE [None]
  - UNRESPONSIVE TO STIMULI [None]
